FAERS Safety Report 9089736 (Version 1)
Quarter: 2013Q1

REPORT INFORMATION
  Report Type: Report from Study
  Country: US (occurrence: US)
  Receive Date: 20130201
  Receipt Date: 20130201
  Transmission Date: 20140127
  Serious: Yes (Other)
  Sender: FDA-Public Use
  Company Number: US-ABBOTT-12P-163-1020901-00

PATIENT
  Age: 41 Year
  Sex: Male

DRUGS (2)
  1. HUMIRA [Suspect]
     Indication: PSORIATIC ARTHROPATHY
     Dates: start: 20120129
  2. HUMIRA [Suspect]
     Dates: end: 20121203

REACTIONS (3)
  - Tooth extraction [Unknown]
  - Visual impairment [Unknown]
  - Vision blurred [Unknown]
